FAERS Safety Report 5767855-X (Version None)
Quarter: 2008Q2

REPORT INFORMATION
  Report Type: 
  Country: None (occurrence: None)
  Receive Date: 20080612
  Receipt Date: 20080602
  Transmission Date: 20081010
  Serious: Yes (Other)
  Sender: FDA-Public Use
  Company Number: PL-BAXTER-2008BH005764

PATIENT
  Sex: Male
  Weight: 90 kg

DRUGS (1)
  1. GAMMAGARD LIQUID [Suspect]
     Indication: DRUG USE FOR UNKNOWN INDICATION
     Route: 042
     Dates: start: 20071017, end: 20071017

REACTIONS (2)
  - CONVULSION [None]
  - FEELING COLD [None]
